FAERS Safety Report 7814220-7 (Version None)
Quarter: 2011Q4

REPORT INFORMATION
  Report Type: 
  Country: None (occurrence: None)
  Receive Date: 20111014
  Receipt Date: 20111011
  Transmission Date: 20120403
  Serious: Yes (Death, Hospitalization)
  Sender: FDA-Public Use
  Company Number: DE-BRISTOL-MYERS SQUIBB COMPANY-16154916

PATIENT
  Age: 78 Year
  Sex: Male
  Weight: 82 kg

DRUGS (14)
  1. AMLODIPINE [Suspect]
     Indication: HYPERTENSION
     Dosage: AMLODIPINE 5MG
     Route: 048
     Dates: start: 20070420, end: 20090630
  2. MOLSIDOMINE [Suspect]
     Indication: CORONARY ARTERY DISEASE
     Dosage: MOLSIDOMIN 8MG
     Route: 048
     Dates: start: 20070420
  3. PREDNISOLONE [Suspect]
     Indication: CHRONIC OBSTRUCTIVE PULMONARY DISEASE
     Dosage: PREDNISOLON 5
     Route: 065
     Dates: start: 20090408
  4. SIMVASTATIN [Concomitant]
     Dates: start: 20080527
  5. ALLOPURINOL [Concomitant]
     Dates: start: 20051227
  6. ATROVENT [Concomitant]
     Dates: start: 20060315
  7. TORSEMIDE [Suspect]
     Indication: CARDIAC FAILURE
     Route: 048
     Dates: start: 20070420
  8. SALMETEROL [Suspect]
     Indication: CHRONIC OBSTRUCTIVE PULMONARY DISEASE
     Dosage: 1DF=50/500MG
     Route: 048
     Dates: start: 20070615, end: 20090630
  9. CLONIDINE HCL [Suspect]
     Indication: HYPERTENSION
     Route: 048
     Dates: start: 20051227
  10. ACETYLCYSTEINE [Concomitant]
     Dates: start: 20070420
  11. VIANI [Suspect]
     Indication: CHRONIC OBSTRUCTIVE PULMONARY DISEASE
     Dosage: 1DF=50/500MG
     Route: 065
     Dates: start: 20060315, end: 20090630
  12. FOSINOPRIL SODIUM [Suspect]
     Indication: HYPERTENSION
     Route: 048
     Dates: start: 20070420
  13. PANTOPRAZOLE SODIUM [Concomitant]
     Dates: start: 20090408
  14. RASILEZ [Suspect]
     Indication: HYPERTENSION
     Route: 048
     Dates: start: 20081021

REACTIONS (3)
  - CARDIAC FAILURE [None]
  - COR PULMONALE CHRONIC [None]
  - CONDITION AGGRAVATED [None]
